FAERS Safety Report 9820699 (Version 1)
Quarter: 2013Q4

REPORT INFORMATION
  Report Type: Spontaneous
  Country: US (occurrence: None)
  Receive Date: 20131025
  Receipt Date: 20131025
  Transmission Date: 20140711
  Serious: No
  Sender: FDA-Public Use
  Company Number: AP356-00090-SPO-US

PATIENT
  Sex: Female

DRUGS (7)
  1. BELVIQ (LORCASERIN HYDROCHLORIDE) [Suspect]
     Route: 048
     Dates: start: 201308, end: 20130913
  2. PROAIR HFA (SALBUTAMOL SULFATE) [Suspect]
     Indication: ASTHMA
     Dosage: AS NEEDED, RESPIRATORY (INHALATION)
     Route: 055
     Dates: end: 20130913
  3. DULERA (MOMETASONE FUROATE) [Suspect]
     Indication: ASTHMA
     Dosage: 200MCG/5 MCG, UNKNOWN, RESPIRATORY (INHALATION)
     Route: 055
     Dates: end: 20130913
  4. OXYBUTYNIN CHLORIDE (OXYBUTYNIN HYDROCHLORIDE) [Suspect]
     Route: 048
     Dates: end: 20130913
  5. SIMVASTATIN (SIMVASTATIN) [Suspect]
     Indication: HYPERTENSION
     Route: 048
     Dates: end: 20130913
  6. KLOR-CON 8 (POTASSIUM CHLORIDE) [Suspect]
     Indication: PRODUCT USED FOR UNKNOWN INDICATION
     Dosage: 8 MILLIEQUVALENTS, 1 IN 1 D, ORAL
     Route: 048
     Dates: end: 20130913
  7. OMEPRAZOLE (OMEPRAZOLE) [Suspect]
     Indication: GASTROOESOPHAGEAL REFLUX DISEASE
     Route: 048
     Dates: end: 20130913

REACTIONS (1)
  - Rash [None]
